FAERS Safety Report 6162242-7 (Version None)
Quarter: 2009Q2

REPORT INFORMATION
  Report Type: 
  Country: None (occurrence: None)
  Receive Date: 20090417
  Receipt Date: 20090408
  Transmission Date: 20091009
  Serious: Yes (Other)
  Sender: FDA-Public Use
  Company Number: GXKR2009ES04087

PATIENT
  Age: 73 Year
  Sex: Female

DRUGS (5)
  1. LINEZOLID [Suspect]
     Indication: BACTERIAL INFECTION
     Dosage: 600 MG, Q12H
  2. FLUOXETINE [Suspect]
     Indication: DEPRESSION
     Dosage: 20 MG, DAILY
  3. FENTANYL-100 [Suspect]
     Indication: ANALGESIA
     Dosage: 25 UG, Q72H, TRANSDERMAL
     Route: 062
  4. TRAMADOL HCL [Suspect]
     Indication: ANALGESIA
     Dosage: 50 MG, Q8H
  5. ACETAMINOPHEN [Concomitant]

REACTIONS (2)
  - LABELLED DRUG-DRUG INTERACTION MEDICATION ERROR [None]
  - SEROTONIN SYNDROME [None]
